FAERS Safety Report 9880367 (Version 2)
Quarter: 2014Q1

REPORT INFORMATION
  Report Type: Spontaneous
  Country: DE (occurrence: DE)
  Receive Date: 20140207
  Receipt Date: 20140307
  Transmission Date: 20141002
  Serious: Yes (Other)
  Sender: FDA-Public Use
  Company Number: DE-SHIRE-ALL1-2014-00848

PATIENT
  Age: 13 Year
  Sex: Male
  Weight: 30 kg

DRUGS (2)
  1. ELVANSE [Suspect]
     Indication: ATTENTION DEFICIT/HYPERACTIVITY DISORDER
     Dosage: 30 MG, 1X/DAY:QD
     Route: 048
     Dates: start: 20131111, end: 20131222
  2. ELVANSE [Suspect]
     Dosage: 40 MG, 1X/DAY:QD
     Route: 048
     Dates: start: 20131223, end: 20140116

REACTIONS (4)
  - Suicidal ideation [Recovered/Resolved]
  - Impulsive behaviour [Recovering/Resolving]
  - Condition aggravated [Recovered/Resolved]
  - Aggression [Unknown]
